FAERS Safety Report 5512434-2 (Version None)
Quarter: 2007Q4

REPORT INFORMATION
  Report Type: 
  Country: None (occurrence: None)
  Receive Date: 20071112
  Receipt Date: 20061113
  Transmission Date: 20080405
  Serious: No
  Sender: FDA-Public Use
  Company Number: A0627264A

PATIENT
  Sex: Male

DRUGS (4)
  1. AVANDAMET [Suspect]
     Dosage: 2MG PER DAY
     Route: 048
     Dates: start: 20061001
  2. ASPIRIN [Concomitant]
  3. OMEPRAZOLE [Concomitant]
  4. INDERAL LA [Concomitant]

REACTIONS (1)
  - BLOOD GLUCOSE DECREASED [None]
